FAERS Safety Report 6235509-1 (Version None)
Quarter: 2009Q2

REPORT INFORMATION
  Report Type: 
  Country: None (occurrence: None)
  Receive Date: 20090618
  Receipt Date: 20080624
  Transmission Date: 20091009
  Serious: No
  Sender: FDA-Public Use
  Company Number: US-ASTRAZENECA-2008UW12692

PATIENT
  Age: 52 Year
  Sex: Male
  Weight: 113.4 kg

DRUGS (2)
  1. RHINOCORT [Suspect]
     Indication: SINUS DISORDER
     Route: 045
  2. STOMACH MEDS [Concomitant]

REACTIONS (1)
  - HEART RATE INCREASED [None]
